FAERS Safety Report 4647179-4 (Version None)
Quarter: 2005Q2

REPORT INFORMATION
  Report Type: 
  Country: None (occurrence: None)
  Receive Date: 20050425
  Receipt Date: 20050412
  Transmission Date: 20051028
  Serious: Yes (Hospitalization)
  Sender: FDA-Public Use
  Company Number: 213782

PATIENT
  Age: 16 Year
  Sex: Male
  Weight: 50 kg

DRUGS (5)
  1. NUTROPIN AQ [Suspect]
     Indication: GROWTH HORMONE DEFICIENCY
     Dosage: 2.2 MG, QD, SUBCUTANEOUS
     Route: 058
     Dates: start: 20031204
  2. COUMADIN [Concomitant]
  3. ENALAPRIL MALEATE [Concomitant]
  4. LASIX [Concomitant]
  5. SPIRONOLACTONE [Concomitant]

REACTIONS (1)
  - KNEE DEFORMITY [None]
